FAERS Safety Report 7628821-2 (Version None)
Quarter: 2011Q3

REPORT INFORMATION
  Report Type: 
  Country: None (occurrence: None)
  Receive Date: 20110722
  Receipt Date: 20110623
  Transmission Date: 20111222
  Serious: Yes (Death)
  Sender: FDA-Public Use
  Company Number: US-CELGENEUS-163-21880-11063129

PATIENT
  Sex: Male

DRUGS (17)
  1. FERROUS SULFATE TAB [Concomitant]
     Route: 065
  2. LOVAZA [Concomitant]
     Route: 065
  3. LOPRESSOR [Concomitant]
     Route: 065
  4. METHADONE HCL [Concomitant]
     Route: 065
  5. ASPIRIN [Concomitant]
     Dosage: 81
     Route: 065
  6. DIOVAN [Concomitant]
     Route: 065
  7. GLIMEPIRIDE [Concomitant]
     Route: 065
  8. LANTUS [Concomitant]
     Route: 065
  9. REVLIMID [Suspect]
     Indication: MULTIPLE MYELOMA
     Dosage: 25 MILLIGRAM
     Route: 048
     Dates: start: 20091201
  10. TRICOR [Concomitant]
     Route: 065
  11. CRESTOR [Concomitant]
     Route: 065
  12. DIGOXIN [Concomitant]
     Route: 065
  13. DEXAMETHASONE [Concomitant]
     Route: 065
  14. VITAMIN D [Concomitant]
     Route: 065
  15. REVLIMID [Suspect]
     Dosage: 15 MILLIGRAM
     Route: 048
     Dates: start: 20110603
  16. ALLOPURINOL [Concomitant]
     Route: 065
  17. NITROGLYCERIN [Concomitant]
     Route: 065

REACTIONS (1)
  - DEATH [None]
